FAERS Safety Report 4781495-0 (Version None)
Quarter: 2005Q3

REPORT INFORMATION
  Report Type: 
  Country: None (occurrence: None)
  Receive Date: 20050927
  Receipt Date: 20050914
  Transmission Date: 20060218
  Serious: Yes (Hospitalization)
  Sender: FDA-Public Use
  Company Number: 2005128572

PATIENT
  Age: 70 Year
  Sex: Male

DRUGS (10)
  1. LYRICA [Suspect]
     Indication: ANGINA PECTORIS
     Dosage: 150 MG (75 MG, 2 IN 1 D), ORAL
     Route: 048
     Dates: start: 20050520, end: 20050531
  2. LYRICA [Suspect]
     Indication: HYPERTENSION
     Dosage: 150 MG (75 MG, 2 IN 1 D), ORAL
     Route: 048
     Dates: start: 20050520, end: 20050531
  3. KLEXANE (HEPARIN-FRACTION, SODIUM SALT) [Concomitant]
  4. SIMVASTATIN [Concomitant]
  5. NITROMEX (GLYCERYL TRINITRATE) [Concomitant]
  6. CARDIZEM [Concomitant]
  7. EMCONCOR (BISOPROLOL) [Concomitant]
  8. SORBANGIL (ISOSORBIDE DINITRATE) [Concomitant]
  9. TRAMADOLOR ^HEXAL^ (TRAMADOL HYDROCHLORIDE) [Concomitant]
  10. PLAVIX [Concomitant]

REACTIONS (8)
  - ACUTE MYOCARDIAL INFARCTION [None]
  - CORONARY ARTERY DISEASE [None]
  - CORONARY ARTERY STENOSIS [None]
  - ELECTROCARDIOGRAM ST SEGMENT DEPRESSION [None]
  - ELECTROCARDIOGRAM T WAVE INVERSION [None]
  - NAUSEA [None]
  - PROCEDURAL COMPLICATION [None]
  - TROPONIN INCREASED [None]
